FAERS Safety Report 9252934 (Version 4)
Quarter: 2021Q2

REPORT INFORMATION
  Report Type: Report from Study
  Country: US (occurrence: US)
  Receive Date: 20130424
  Receipt Date: 20210609
  Transmission Date: 20210717
  Serious: Yes (Hospitalization, Other)
  Sender: FDA-Public Use
  Company Number: US-BRISTOL-MYERS SQUIBB COMPANY-18790295

PATIENT
  Age: 62 Year
  Sex: Male
  Weight: 89 kg

DRUGS (22)
  1. GABAPENTIN. [Concomitant]
     Active Substance: GABAPENTIN
     Indication: NEURALGIA
     Dosage: 300 MG, TID
  2. GLIPIZIDE. [Concomitant]
     Active Substance: GLIPIZIDE
     Dosage: 10 MG, QD
  3. OMEPRAZOL E [Concomitant]
     Active Substance: OMEPRAZOLE
     Dosage: 20 MG, QD
  4. ZOFRAN [Concomitant]
     Active Substance: ONDANSETRON HYDROCHLORIDE
     Indication: NAUSEA
     Dosage: 8MG EVERY 8 HR AS NEEDED
  5. SODIUM CHLORIDE. [Concomitant]
     Active Substance: SODIUM CHLORIDE
     Dosage: 5 %, INTERMITTENT
     Route: 047
  6. IPILIMUMAB [Suspect]
     Active Substance: IPILIMUMAB
     Indication: METASTATIC MALIGNANT MELANOMA
     Dosage: CYCLE2?19MAR13  CY1:26FEB13;903MG WT:90.3KG  CY2:19MAR13;890MG;WT89KG.
     Dates: start: 20130226, end: 20130415
  7. METFORMIN [Concomitant]
     Active Substance: METFORMIN HYDROCHLORIDE
     Dosage: 500 MG, BID
  8. PEPCID [Concomitant]
     Active Substance: FAMOTIDINE
     Indication: GASTROOESOPHAGEAL REFLUX DISEASE
     Dosage: UNK UNK, INTERMITTENT
  9. CYCLOPENTOLATE HYDROCHLORIDE. [Concomitant]
     Active Substance: CYCLOPENTOLATE HYDROCHLORIDE
     Dosage: 1DF: EYE DROPS 1 DROP IN EACH EYE AS THAT TIME
  10. TRIPROLIDINE HCL + PSEUDOEPHEDRINE HCL [Concomitant]
     Dosage: UNK UNK, PRN
  11. ONDANSETRON [Concomitant]
     Active Substance: ONDANSETRON
  12. ACTIFED [Concomitant]
     Dosage: 1 TABS
  13. HYDROXYZINE [Concomitant]
     Active Substance: HYDROXYZINE HYDROCHLORIDE
     Dosage: 50 MG, INTERMITTENT
  14. MAGNESIUM GLUCONATE [Concomitant]
     Active Substance: MAGNESIUM GLUCONATE
     Dosage: 250 MG, QD
  15. ZOFRAN [Concomitant]
     Active Substance: ONDANSETRON HYDROCHLORIDE
     Indication: VOMITING
  16. OXYCODONE [Concomitant]
     Active Substance: OXYCODONE
     Indication: PAIN
     Dosage: AS NEEDED
  17. NAPROXEN. [Concomitant]
     Active Substance: NAPROXEN
     Dosage: UNK UNK, PRN
  18. LOPERAMIDE [Concomitant]
     Active Substance: LOPERAMIDE
     Dosage: UNK UNK, PRN
  19. AMLODIPINE BESYLATE. [Concomitant]
     Active Substance: AMLODIPINE BESYLATE
     Indication: BLOOD PRESSURE MEASUREMENT
     Dosage: 5 MG, QD
     Route: 048
  20. DIFLUPREDNATE [Concomitant]
     Active Substance: DIFLUPREDNATE
     Dosage: EYE DROP, 1 DROP IN EACH EYE 4 / 1 DAY
  21. EMOLLIENT [Concomitant]
  22. SENOKOT [Concomitant]
     Active Substance: SENNOSIDES
     Dosage: 1DF: 2 TABS, AS NECESSARY

REACTIONS (9)
  - Iridocyclitis [Recovered/Resolved]
  - Dermatitis [Recovered/Resolved]
  - Myelitis transverse [Recovering/Resolving]
  - Nephritis [Recovered/Resolved]
  - Acute kidney injury [Recovering/Resolving]
  - Colitis [Recovered/Resolved]
  - Pyrexia [Unknown]
  - Vitritis [Unknown]
  - Pneumonitis [Unknown]

NARRATIVE: CASE EVENT DATE: 20130404
